FAERS Safety Report 9306209 (Version 2)
Quarter: 2013Q3

REPORT INFORMATION
  Report Type: Spontaneous
  Country: FR (occurrence: FR)
  Receive Date: 20130523
  Receipt Date: 20130927
  Transmission Date: 20140515
  Serious: Yes (Other)
  Sender: FDA-Public Use
  Company Number: FR-GLAXOSMITHKLINE-B0892440A

PATIENT
  Age: 53 Year
  Sex: Female

DRUGS (4)
  1. DEROXAT [Suspect]
     Indication: DEPRESSION
     Route: 048
     Dates: start: 20130417, end: 20130428
  2. LEVOTHYROX [Concomitant]
     Dosage: 125MCG PER DAY
     Route: 048
  3. ALPRAZOLAM [Concomitant]
     Dosage: .25MG PER DAY
     Route: 048
  4. STAGID [Concomitant]
     Dosage: 700MG THREE TIMES PER DAY
     Route: 048

REACTIONS (1)
  - Vaginal haemorrhage [Recovered/Resolved]
